FAERS Safety Report 16445945 (Version 1)
Quarter: 2019Q2

REPORT INFORMATION
  Report Type: Spontaneous
  Country: US (occurrence: US)
  Receive Date: 20190508
  Receipt Date: 20190508
  Transmission Date: 20190711
  Serious: No
  Sender: FDA-Public Use
  Company Number: None

PATIENT
  Age: 57 Year
  Sex: Male
  Weight: 68.6 kg

DRUGS (3)
  1. FLUOROURACIL. [Suspect]
     Active Substance: FLUOROURACIL
  2. SMARTEZ ELASTOMERIC PUMP [Suspect]
     Active Substance: DEVICE
     Indication: RECURRENT CANCER
     Dosage: 5850MG OVER 96 HOURS INTRAVENOUS
     Route: 042
     Dates: start: 20181224, end: 20181224
  3. SMARTEZ ELASTOMERIC PUMP [Suspect]
     Active Substance: DEVICE
     Indication: OROPHARYNGEAL SQUAMOUS CELL CARCINOMA
     Dosage: 5850MG OVER 96 HOURS INTRAVENOUS
     Route: 042
     Dates: start: 20181224, end: 20181224

REACTIONS (5)
  - Incorrect drug administration rate [None]
  - Wrong device used [None]
  - Product preparation error [None]
  - Product administration error [None]
  - Product label on wrong product [None]

NARRATIVE: CASE EVENT DATE: 20181224
